FAERS Safety Report 9606656 (Version 2)
Quarter: 2013Q4

REPORT INFORMATION
  Report Type: Spontaneous
  Country: US (occurrence: US)
  Receive Date: 20131008
  Receipt Date: 20131008
  Transmission Date: 20140711
  Serious: No
  Sender: FDA-Public Use
  Company Number: US-AMGEN-USASP2013062088

PATIENT
  Age: 63 Year
  Sex: Female
  Weight: 47.17 kg

DRUGS (7)
  1. PROLIA [Suspect]
     Indication: OSTEOPOROSIS POSTMENOPAUSAL
     Dosage: UNK UNK, Q6MO
     Route: 065
     Dates: start: 20110825
  2. PROLIA [Suspect]
     Dosage: UNK
     Dates: start: 20120301
  3. PROLIA [Suspect]
     Dosage: UNK
     Route: 065
     Dates: start: 20120816
  4. PROLIA [Suspect]
     Dosage: UNK
     Route: 065
     Dates: start: 20130225
  5. SYNTHROID [Concomitant]
     Route: 065
  6. ZOCOR [Concomitant]
     Route: 065
  7. VITAMINS /90003601/ [Concomitant]

REACTIONS (1)
  - Granuloma annulare [Unknown]
